FAERS Safety Report 5537173-3 (Version None)
Quarter: 2007Q4

REPORT INFORMATION
  Report Type: 
  Country: None (occurrence: None)
  Receive Date: 20071207
  Receipt Date: 20071128
  Transmission Date: 20080405
  Serious: Yes (Disabling, Other)
  Sender: FDA-Public Use
  Company Number: US-BRISTOL-MYERS SQUIBB COMPANY-13938477

PATIENT
  Age: 66 Year
  Sex: Female

DRUGS (5)
  1. ORENCIA [Suspect]
     Indication: RHEUMATOID ARTHRITIS
     Dosage: 3 INFUSIONS: 4SEP07, 2OCT07, 30OCT07
     Route: 042
     Dates: start: 20061003
  2. METHOTREXATE [Concomitant]
     Dates: start: 20010101
  3. FOLIC ACID [Concomitant]
  4. ZYRTEC [Concomitant]
  5. LEVOTHYROXINE SODIUM [Concomitant]

REACTIONS (9)
  - ANXIETY [None]
  - BREAST PAIN [None]
  - BREAST SWELLING [None]
  - DYSPNOEA [None]
  - ERYTHEMA [None]
  - FAT TISSUE INCREASED [None]
  - GENITAL PAIN [None]
  - HEART RATE INCREASED [None]
  - VISION BLURRED [None]
